FAERS Safety Report 9519108 (Version 1)
Quarter: 2013Q3

REPORT INFORMATION
  Report Type: Spontaneous
  Country: MX (occurrence: MX)
  Receive Date: 20130912
  Receipt Date: 20130912
  Transmission Date: 20140515
  Serious: Yes (Hospitalization)
  Sender: FDA-Public Use
  Company Number: PHHY2013MX099166

PATIENT
  Sex: Female

DRUGS (1)
  1. SANDIMMUNE NEORAL [Suspect]
     Dosage: 100 MG/ML, UNK
     Route: 048
     Dates: start: 201307

REACTIONS (1)
  - General physical health deterioration [Not Recovered/Not Resolved]
